FAERS Safety Report 6067729-3 (Version None)
Quarter: 2009Q1

REPORT INFORMATION
  Report Type: 
  Country: None (occurrence: None)
  Receive Date: 20090205
  Receipt Date: 20090130
  Transmission Date: 20090719
  Serious: Yes (Death, Other)
  Sender: FDA-Public Use
  Company Number: GB-AMGEN-UK235529

PATIENT
  Sex: Female
  Weight: 106.7 kg

DRUGS (23)
  1. MIMPARA [Suspect]
     Indication: HYPERPARATHYROIDISM SECONDARY
     Route: 048
     Dates: start: 20061212, end: 20070122
  2. MIMPARA [Suspect]
     Dates: start: 20070123, end: 20070206
  3. MIMPARA [Suspect]
     Dates: start: 20070521, end: 20070618
  4. MIMPARA [Suspect]
     Dates: start: 20070619
  5. SIROLIMUS [Suspect]
     Route: 048
     Dates: start: 20031101, end: 20070720
  6. NEFOPAM HYDROCHLORIDE [Concomitant]
     Route: 048
     Dates: start: 20060328, end: 20070720
  7. ACETAMINOPHEN AND CODEINE PHOSPHATE [Concomitant]
     Route: 048
     Dates: start: 20060407, end: 20070601
  8. AUGMENTIN '125' [Concomitant]
     Route: 048
     Dates: start: 20060613, end: 20070726
  9. CHLORPHENIRAMINE MALEATE [Concomitant]
     Route: 048
     Dates: start: 20061017, end: 20070720
  10. LISINOPRIL [Concomitant]
     Route: 048
     Dates: start: 20070123, end: 20070601
  11. ENOXAPARIN SODIUM [Concomitant]
     Route: 058
     Dates: start: 20070217, end: 20070227
  12. LACTULOSE [Concomitant]
     Route: 048
     Dates: start: 20070217, end: 20070601
  13. WARFARIN [Concomitant]
     Route: 048
     Dates: start: 20070227, end: 20070522
  14. ALFACALCIDOL [Concomitant]
     Route: 048
     Dates: start: 20070327, end: 20070601
  15. ALFACALCIDOL [Concomitant]
     Dates: start: 20070616, end: 20070726
  16. SODIUM BICARBONATE [Concomitant]
     Route: 048
     Dates: start: 20070521, end: 20070720
  17. DIHYDROCODEINE BITARTRATE INJ [Concomitant]
     Route: 048
     Dates: start: 20070601, end: 20070619
  18. FENTANYL-75 [Concomitant]
     Route: 048
     Dates: start: 20070601, end: 20070619
  19. RENAGEL [Concomitant]
     Route: 048
     Dates: start: 20070601, end: 20070720
  20. SPIRONOLACTONE [Concomitant]
     Route: 048
     Dates: start: 20070601, end: 20070702
  21. NYSTATIN [Concomitant]
     Route: 048
     Dates: start: 20070702, end: 20070720
  22. PREDNISOLONE [Concomitant]
     Route: 048
     Dates: start: 20070720, end: 20070726
  23. ALLOPURINOL [Concomitant]
     Route: 048
     Dates: start: 20070720, end: 20070720

REACTIONS (5)
  - CALCIPHYLAXIS [None]
  - CARDIAC FAILURE [None]
  - DRUG INTERACTION [None]
  - MYOCARDIAL ISCHAEMIA [None]
  - PROTEINURIA [None]
